FAERS Safety Report 8843913 (Version 1)
Quarter: 2012Q4

REPORT INFORMATION
  Report Type: 
  Country: GB (occurrence: GB)
  Receive Date: 20121016
  Receipt Date: 20121016
  Transmission Date: 20130627
  Serious: Yes (Other)
  Sender: FDA-Public Use
  Company Number: GB-JNJFOC-20120911405

PATIENT
  Sex: Female

DRUGS (5)
  1. RISPERIDONE [Suspect]
     Indication: PRODUCT USED FOR UNKNOWN INDICATION
     Route: 048
  2. RISPERIDONE [Suspect]
     Indication: PRODUCT USED FOR UNKNOWN INDICATION
     Dosage: above 1mg per day until tolerance was established
     Route: 048
     Dates: start: 200812
  3. CITALOPRAM [Concomitant]
     Route: 065
  4. BUTRANS [Concomitant]
     Route: 065
  5. MUSCLE RELAXANTS [Concomitant]
     Route: 065

REACTIONS (10)
  - Condition aggravated [Unknown]
  - Extrapyramidal disorder [Unknown]
  - Overdose [Unknown]
  - Quadriplegia [Unknown]
  - Dyspnoea [Unknown]
  - Confusional state [Unknown]
  - Stupor [Unknown]
  - Aggression [Not Recovered/Not Resolved]
  - Salivary hypersecretion [Unknown]
  - Salivary hypersecretion [Unknown]
